FAERS Safety Report 4704937-5 (Version None)
Quarter: 2005Q3

REPORT INFORMATION
  Report Type: 
  Country: None (occurrence: None)
  Receive Date: 20050701
  Receipt Date: 20050616
  Transmission Date: 20060218
  Serious: Yes (Hospitalization)
  Sender: FDA-Public Use
  Company Number: CH-BRISTOL-MYERS SQUIBB COMPANY-13008412

PATIENT
  Age: 13 Year
  Sex: Male

DRUGS (2)
  1. EFAVIRENZ [Suspect]
     Indication: HIV INFECTION
     Route: 048
     Dates: start: 20050529, end: 20050606
  2. ABACAVIR SULFATE+ZIDOVUDINE+LAMIVUDINE [Concomitant]
     Dates: start: 20050529, end: 20050606

REACTIONS (3)
  - ABDOMINAL PAIN [None]
  - PYREXIA [None]
  - RASH [None]
